FAERS Safety Report 9608246 (Version 1)
Quarter: 2013Q4

REPORT INFORMATION
  Report Type: Spontaneous
  Country: DE (occurrence: DE)
  Receive Date: 20131009
  Receipt Date: 20131009
  Transmission Date: 20140711
  Serious: Yes (Hospitalization, Other)
  Sender: FDA-Public Use
  Company Number: DE-UCBSA-099231

PATIENT
  Sex: Female

DRUGS (3)
  1. LEV UCB [Suspect]
     Dosage: UNKNOWN DOSE
  2. LEV UCB [Suspect]
     Dosage: 750MG-0-1250MG
     Dates: start: 20130918
  3. AXURA [Concomitant]
     Dosage: 20 MG

REACTIONS (1)
  - Convulsion [Unknown]
